FAERS Safety Report 8078241-4 (Version None)
Quarter: 2012Q1

REPORT INFORMATION
  Report Type: 
  Country: None (occurrence: None)
  Receive Date: 20120123
  Receipt Date: 20120112
  Transmission Date: 20120608
  Serious: Yes (Other)
  Sender: FDA-Public Use
  Company Number: AUR-APL-2012-00505

PATIENT
  Age: 49 Year
  Sex: Female
  Weight: 74.83 kg

DRUGS (8)
  1. ALTACE [Suspect]
     Indication: PRODUCT USED FOR UNKNOWN INDICATION
     Dosage: (5 MG), ORAL
     Route: 048
     Dates: start: 20081124
  2. CYMBALTA [Suspect]
     Indication: PRODUCT USED FOR UNKNOWN INDICATION
     Dosage: (60 MG)
  3. LYRICA [Suspect]
     Indication: PRODUCT USED FOR UNKNOWN INDICATION
     Dosage: (225 MG)
  4. XYREM [Suspect]
     Indication: FIBROMYALGIA
     Dosage: 4 GM (2 GM, 2 IN 1 D), ORAL
     Route: 048
     Dates: start: 20081124
  5. DYAZIDE [Concomitant]
  6. ATENOLOL [Suspect]
     Indication: PRODUCT USED FOR UNKNOWN INDICATION
     Dosage: (25 MG)
  7. SIMVASTATIN [Concomitant]
     Indication: PRODUCT USED FOR UNKNOWN INDICATION
     Dosage: (20 MG)
  8. LEXAPRO [Suspect]
     Indication: PRODUCT USED FOR UNKNOWN INDICATION
     Dosage: (20 MG)

REACTIONS (6)
  - OEDEMA PERIPHERAL [None]
  - ABDOMINAL PAIN [None]
  - DYSPEPSIA [None]
  - BLOOD PRESSURE INCREASED [None]
  - JOINT SWELLING [None]
  - ABDOMINAL DISTENSION [None]
